FAERS Safety Report 12777830 (Version 1)
Quarter: 2016Q3

REPORT INFORMATION
  Report Type: Spontaneous
  Country: US (occurrence: US)
  Receive Date: 20160924
  Receipt Date: 20160924
  Transmission Date: 20161109
  Serious: No
  Sender: FDA-Public Use
  Company Number: US-JAZZ-2016-US-010749

PATIENT
  Sex: Male

DRUGS (20)
  1. TRAZODONE [Concomitant]
     Active Substance: TRAZODONE HYDROCHLORIDE
  2. AMPHETAMINE [Concomitant]
     Active Substance: AMPHETAMINE
  3. SYMBICORT [Concomitant]
     Active Substance: BUDESONIDE\FORMOTEROL FUMARATE DIHYDRATE
  4. ABILIFY [Concomitant]
     Active Substance: ARIPIPRAZOLE
  5. LOPERAMIDE [Concomitant]
     Active Substance: LOPERAMIDE
  6. MELOXICAM. [Concomitant]
     Active Substance: MELOXICAM
  7. BUPROPION HYDROCHLORIDE SR [Concomitant]
     Active Substance: BUPROPION HYDROCHLORIDE
  8. FLONASE [Concomitant]
     Active Substance: FLUTICASONE PROPIONATE
  9. HYDROCODONE/ACETAMINOPHEN [Concomitant]
     Active Substance: ACETAMINOPHEN\HYDROCODONE
  10. ZYRTEC [Concomitant]
     Active Substance: CETIRIZINE HYDROCHLORIDE
  11. XYREM [Suspect]
     Active Substance: SODIUM OXYBATE
     Dosage: 4.5 G, BID
     Route: 048
     Dates: start: 201401, end: 2014
  12. METHOCARBAMOL. [Concomitant]
     Active Substance: METHOCARBAMOL
  13. CYMBALTA [Concomitant]
     Active Substance: DULOXETINE HYDROCHLORIDE
  14. VENLAFAXINE HCL [Concomitant]
     Active Substance: VENLAFAXINE HYDROCHLORIDE
  15. VITAMIN D3 [Concomitant]
     Active Substance: CHOLECALCIFEROL
  16. XYREM [Suspect]
     Active Substance: SODIUM OXYBATE
     Dosage: DOSE ADJUSTMENTS
     Route: 048
     Dates: start: 201302, end: 201401
  17. XYREM [Suspect]
     Active Substance: SODIUM OXYBATE
     Dosage: 3 G, TID
     Route: 048
     Dates: start: 201410
  18. NAPROSYN [Concomitant]
     Active Substance: NAPROXEN
  19. TAMSULOSIN HCL [Concomitant]
     Active Substance: TAMSULOSIN
  20. XYREM [Suspect]
     Active Substance: SODIUM OXYBATE
     Indication: NARCOLEPSY
     Dosage: 2.25 G, BID
     Route: 048
     Dates: start: 201301, end: 201302

REACTIONS (1)
  - Depressed mood [Unknown]
